FAERS Safety Report 5530096-5 (Version None)
Quarter: 2007Q4

REPORT INFORMATION
  Report Type: 
  Country: None (occurrence: None)
  Receive Date: 20071119
  Receipt Date: 20070827
  Transmission Date: 20080405
  Serious: No
  Sender: FDA-Public Use
  Company Number: TPA2007A01811

PATIENT
  Age: 18 Year
  Sex: Female

DRUGS (1)
  1. ROZEREM [Suspect]
     Dosage: 8 MG, QHS, PER ORAL
     Route: 048

REACTIONS (1)
  - SOMNOLENCE [None]
